FAERS Safety Report 21492387 (Version 1)
Quarter: 2022Q4

REPORT INFORMATION
  Report Type: Spontaneous
  Country: BE (occurrence: BE)
  Receive Date: 20221021
  Receipt Date: 20221021
  Transmission Date: 20230113
  Serious: Yes (Hospitalization, Other)
  Sender: FDA-Public Use
  Company Number: BE-TEVA-2022-BE-2818005

PATIENT
  Age: 77 Year
  Sex: Female
  Weight: 54 kg

DRUGS (14)
  1. PEMETREXED MONOHYDRATE [Suspect]
     Active Substance: PEMETREXED MONOHYDRATE
     Indication: Lung cancer metastatic
     Dosage: FORM STRENGTH: 100MILLIGRAM, HER LAST ADMINISTRATION WAS ON 27-SEP-2022, TOTAL DOSE: 592.5 MG
     Route: 042
     Dates: start: 20220607, end: 20220927
  2. MOVICOL [Concomitant]
     Active Substance: POLYETHYLENE GLYCOL 3350\POTASSIUM CHLORIDE\SODIUM BICARBONATE\SODIUM CHLORIDE
     Indication: Product used for unknown indication
  3. BECLOMETHASONE DIPROPIONATE\FORMOTEROL FUMARATE [Concomitant]
     Active Substance: BECLOMETHASONE DIPROPIONATE\FORMOTEROL FUMARATE
     Indication: Product used for unknown indication
     Dosage: 2 INHALATIONS TWO TIMES PER DAY
     Route: 055
  4. D-VITALFORTE [Concomitant]
     Indication: Product used for unknown indication
  5. FOLIC ACID [Concomitant]
     Active Substance: FOLIC ACID
     Indication: Product used for unknown indication
     Dosage: .4 MILLIGRAM DAILY;
  6. ATORVASTATIN [Concomitant]
     Active Substance: ATORVASTATIN
     Indication: Product used for unknown indication
     Dosage: 20 MILLIGRAM DAILY;
  7. ASPIRIN [Concomitant]
     Active Substance: ASPIRIN
     Indication: Product used for unknown indication
     Dosage: 80 MILLIGRAM DAILY;
  8. HALCION [Concomitant]
     Active Substance: TRIAZOLAM
     Indication: Product used for unknown indication
     Dosage: .5 MILLIGRAM DAILY;
  9. BISOPROLOL [Concomitant]
     Active Substance: BISOPROLOL
     Indication: Product used for unknown indication
     Dosage: 2.5 MILLIGRAM DAILY;
  10. BELSAR [Concomitant]
     Indication: Product used for unknown indication
     Dosage: FORM STRENGTH: 20MG, ONE TIME PER DAY (CURRENTLY PAUSED)
  11. PANTOMED [Concomitant]
     Indication: Product used for unknown indication
  12. MEDROL [Concomitant]
     Active Substance: METHYLPREDNISOLONE
     Indication: Product used for unknown indication
     Dosage: BEFORE AND AFTER CHEMO (MEDROL BECAUSE OF RT STOPPED SINCE 1 DAY)
  13. TRAMADOL HYDROCHLORIDE [Concomitant]
     Active Substance: TRAMADOL HYDROCHLORIDE
     Indication: Product used for unknown indication
     Dosage: 10 DROP TWO TIME PER DAY
  14. XGEVA [Concomitant]
     Active Substance: DENOSUMAB
     Indication: Product used for unknown indication
     Dosage: 1 TIMES EVERY 4 WEEKS ON TUESDAY

REACTIONS (10)
  - Diverticular perforation [Not Recovered/Not Resolved]
  - Acute kidney injury [Not Recovered/Not Resolved]
  - Pancytopenia [Not Recovered/Not Resolved]
  - Anaemia [Not Recovered/Not Resolved]
  - Neutropenia [Not Recovered/Not Resolved]
  - Thrombocytopenia [Not Recovered/Not Resolved]
  - Chills [Not Recovered/Not Resolved]
  - Diarrhoea [Not Recovered/Not Resolved]
  - Asthenia [Not Recovered/Not Resolved]
  - Productive cough [Not Recovered/Not Resolved]

NARRATIVE: CASE EVENT DATE: 20220101
